FAERS Safety Report 8850974 (Version 3)
Quarter: 2013Q3

REPORT INFORMATION
  Report Type: Spontaneous
  Country: FI (occurrence: FI)
  Receive Date: 20121019
  Receipt Date: 20130827
  Transmission Date: 20140515
  Serious: Yes (Hospitalization)
  Sender: FDA-Public Use
  Company Number: FI-JNJFOC-20121006539

PATIENT
  Age: 17 Year
  Sex: Female

DRUGS (19)
  1. REMICADE [Suspect]
     Indication: JUVENILE IDIOPATHIC ARTHRITIS
     Route: 042
     Dates: end: 201208
  2. REMICADE [Suspect]
     Indication: JUVENILE IDIOPATHIC ARTHRITIS
     Dosage: RECEIVED FOR 3 TIMES
     Route: 042
     Dates: start: 201202, end: 20120508
  3. TRAMAL [Concomitant]
     Route: 065
  4. IBUPROFEN [Concomitant]
     Route: 065
  5. FUNGORAL [Concomitant]
     Route: 065
  6. ARAVA [Concomitant]
     Route: 048
     Dates: end: 20120801
  7. KALCIPOS D [Concomitant]
     Route: 048
  8. PREDNISOLON [Concomitant]
     Route: 048
  9. BURANA [Concomitant]
     Route: 048
  10. AERIUS [Concomitant]
     Route: 048
  11. OFTAN DEXA [Concomitant]
     Route: 047
  12. PRED FORTE [Concomitant]
     Route: 047
  13. HYDROCORTISONE [Concomitant]
     Route: 003
  14. PEVISONE NOS [Concomitant]
     Route: 061
  15. APOLAR [Concomitant]
     Route: 065
  16. BEMETSON [Concomitant]
     Route: 065
  17. PREDNISOLON [Concomitant]
     Route: 065
  18. BURANA [Concomitant]
     Route: 065
  19. AERIUS [Concomitant]
     Route: 065

REACTIONS (2)
  - Hepatitis chronic active [Recovering/Resolving]
  - Lupus-like syndrome [Recovered/Resolved with Sequelae]
